FAERS Safety Report 4765447-2 (Version None)
Quarter: 2005Q3

REPORT INFORMATION
  Report Type: 
  Country: None (occurrence: None)
  Receive Date: 20050906
  Receipt Date: 20050816
  Transmission Date: 20060218
  Serious: Yes (Other)
  Sender: FDA-Public Use
  Company Number: EWC050845486

PATIENT
  Age: 62 Year
  Sex: Female
  Weight: 54 kg

DRUGS (3)
  1. OLANZAPINE [Suspect]
     Indication: SCHIZOPHRENIA, PARANOID TYPE
     Dosage: 20 MG DAY
     Dates: start: 19990929
  2. HALOPERIDOL [Concomitant]
  3. BENZOTROPINE (BENZATROPINE MESILATE) [Concomitant]

REACTIONS (20)
  - APATHY [None]
  - BLUNTED AFFECT [None]
  - COGNITIVE DISORDER [None]
  - CONVULSION [None]
  - DELUSION [None]
  - DEPENDENT PERSONALITY DISORDER [None]
  - DISORIENTATION [None]
  - DISTURBANCE IN ATTENTION [None]
  - DROOLING [None]
  - DRUG INEFFECTIVE [None]
  - DYSPHAGIA [None]
  - EXCITABILITY [None]
  - GRANDIOSITY [None]
  - HALLUCINATION [None]
  - HOSTILITY [None]
  - HYPOKINESIA [None]
  - HYPONATRAEMIA [None]
  - IMPULSE-CONTROL DISORDER [None]
  - SOCIAL AVOIDANT BEHAVIOUR [None]
  - THINKING ABNORMAL [None]
